FAERS Safety Report 18272877 (Version 2)
Quarter: 2020Q3

REPORT INFORMATION
  Report Type: Report from Study
  Country: CA (occurrence: CA)
  Receive Date: 20200916
  Receipt Date: 20200921
  Transmission Date: 20201103
  Serious: Yes (Other)
  Sender: FDA-Public Use
  Company Number: CA-JNJFOC-20200909455

PATIENT
  Age: 72 Year
  Sex: Female
  Weight: 65.8 kg

DRUGS (1)
  1. REMICADE [Suspect]
     Active Substance: INFLIXIMAB
     Indication: CROHN^S DISEASE
     Route: 042
     Dates: start: 20200822

REACTIONS (3)
  - Colectomy total [Unknown]
  - Treatment failure [Unknown]
  - Ileostomy [Unknown]
